FAERS Safety Report 19015041 (Version 1)
Quarter: 2021Q1

REPORT INFORMATION
  Report Type: Spontaneous
  Country: AU (occurrence: AU)
  Receive Date: 20210317
  Receipt Date: 20210317
  Transmission Date: 20210420
  Serious: Yes (Death)
  Sender: FDA-Public Use
  Company Number: AU-TEIKOKU PHARMA USA-TPU2021-00387

PATIENT

DRUGS (2)
  1. VERSATIS [Suspect]
     Active Substance: LIDOCAINE
     Indication: CANCER PAIN
     Route: 061
  2. VERSATIS [Suspect]
     Active Substance: LIDOCAINE
     Indication: NEURALGIA

REACTIONS (2)
  - Death [Fatal]
  - Off label use [Not Recovered/Not Resolved]
